FAERS Safety Report 9803483 (Version 2)
Quarter: 2014Q3

REPORT INFORMATION
  Report Type: Spontaneous
  Country: FR (occurrence: FR)
  Receive Date: 20140108
  Receipt Date: 20140718
  Transmission Date: 20150326
  Serious: Yes (Hospitalization)
  Sender: FDA-Public Use
  Company Number: FR-009507513-1401FRA000109

PATIENT
  Age: 33 Year
  Sex: Female

DRUGS (8)
  1. MENOPUR [Suspect]
     Active Substance: FOLLICLE STIMULATING HORMONE BETA POLYPEPTIDE\LUTROPIN ALFA
     Dosage: 125 IU, QD
     Route: 058
     Dates: start: 20130621, end: 20130621
  2. GONADOTROPIN, CHORIONIC [Suspect]
     Active Substance: CHORIOGONADOTROPIN ALFA
     Dosage: 1 DF, ONCE
     Route: 030
     Dates: start: 20130622, end: 20130622
  3. ORGALUTRAN [Suspect]
     Active Substance: GANIRELIX ACETATE
     Indication: IN VITRO FERTILISATION
     Dosage: 1 DF, QD
     Route: 058
     Dates: start: 20130617, end: 20130621
  4. MENOPUR [Suspect]
     Active Substance: FOLLICLE STIMULATING HORMONE BETA POLYPEPTIDE\LUTROPIN ALFA
     Indication: IN VITRO FERTILISATION
     Dosage: 225 IU, QD
     Route: 058
     Dates: start: 20130612, end: 20130616
  5. MENOPUR [Suspect]
     Active Substance: FOLLICLE STIMULATING HORMONE BETA POLYPEPTIDE\LUTROPIN ALFA
     Dosage: 50 IU, QD
     Route: 058
     Dates: start: 20130620, end: 20130620
  6. PROVAMES [Suspect]
     Active Substance: ESTRADIOL
     Dosage: 2 MG, BID
     Route: 048
     Dates: start: 20130624, end: 201307
  7. MENOPUR [Suspect]
     Active Substance: FOLLICLE STIMULATING HORMONE BETA POLYPEPTIDE\LUTROPIN ALFA
     Dosage: 150 IU, QD
     Route: 058
     Dates: start: 20130617, end: 20130619
  8. UTROGESTAN [Suspect]
     Active Substance: PROGESTERONE
     Dosage: 100 MG, TID
     Route: 048
     Dates: start: 20130624, end: 201307

REACTIONS (3)
  - Ascites [Recovered/Resolved]
  - Ovarian hyperstimulation syndrome [Recovered/Resolved]
  - Haematocrit increased [Recovered/Resolved]

NARRATIVE: CASE EVENT DATE: 20130703
